FAERS Safety Report 4811151-1 (Version None)
Quarter: 2005Q4

REPORT INFORMATION
  Report Type: 
  Country: None (occurrence: None)
  Receive Date: 20051027
  Receipt Date: 20051024
  Transmission Date: 20060501
  Serious: Yes (Other)
  Sender: FDA-Public Use
  Company Number: CN-GLAXOSMITHKLINE-B0398478A

PATIENT
  Age: 24 Year
  Sex: Female

DRUGS (3)
  1. LAMICTAL [Suspect]
     Indication: BIPOLAR DISORDER
     Dosage: 50MG TWICE PER DAY
     Route: 048
     Dates: start: 20030701, end: 20031101
  2. LITHIUM [Concomitant]
  3. CIPRAMIL [Concomitant]

REACTIONS (2)
  - DYSPHAGIA [None]
  - OESOPHAGEAL ACHALASIA [None]
